FAERS Safety Report 8485118-9 (Version None)
Quarter: 2012Q3

REPORT INFORMATION
  Report Type: 
  Country: None (occurrence: None)
  Receive Date: 20120703
  Receipt Date: 20120622
  Transmission Date: 20120928
  Serious: Yes (Death, Hospitalization, Other)
  Sender: FDA-Public Use
  Company Number: US-PFIZER INC-2012152621

PATIENT
  Age: 14 Year
  Sex: Female
  Weight: 60.4 kg

DRUGS (9)
  1. CEFEPIME [Suspect]
     Indication: KLEBSIELLA INFECTION
     Dosage: UNK
     Dates: start: 20120510
  2. CALCIUM GLUCONATE [Suspect]
  3. DEXAMETHASONE SODIUM PHOSPHATE [Suspect]
     Indication: B PRECURSOR TYPE ACUTE LEUKAEMIA
     Dosage: 10 MG/M2, BID OR IV ON DAYS 1-5 AND 15-19
     Route: 048
     Dates: start: 20120430
  4. MITOXANTRONE HYDROCHLORIDE [Suspect]
     Indication: B PRECURSOR TYPE ACUTE LEUKAEMIA
     Dosage: 10 MG/M2, OVER 30 MINUTES ON DAYS 1 AND 2
     Route: 042
     Dates: start: 20120430
  5. TEMSIROLIMUS [Suspect]
     Indication: B PRECURSOR TYPE ACUTE LEUKAEMIA
     Dosage: 7.5 MG/M2, OVER 30 MINUTES ON DAYS I, 8 AND 15 (MAX DOSE: 15 MG)
     Route: 042
     Dates: start: 20120430
  6. PEGASPARGASE [Suspect]
     Indication: B PRECURSOR TYPE ACUTE LEUKAEMIA
     Dosage: 2500 IU/M2 OVER 1 HR ON DAYS 3 AND 17
     Route: 042
     Dates: start: 20120430
  7. VINCRISTINE SULFATE [Suspect]
     Indication: B PRECURSOR TYPE ACUTE LEUKAEMIA
     Dosage: 1.5 MG/M2 CYCLIC (MAX 2 MG) OVER I-5 MINUTES OR INFUSION VIA MINI BAG ON DAYS 1, 8, I5 AND 22
     Route: 042
     Dates: start: 20120430
  8. AMBISOME [Suspect]
     Indication: CANDIDA TEST POSITIVE
     Dosage: UNK
     Dates: start: 20120520
  9. METHOTREXATE SODIUM [Suspect]
     Indication: B PRECURSOR TYPE ACUTE LEUKAEMIA
     Dosage: 8-15 MG (AGE BASED DOSING) IT ON DAYS 1 (OR UP TO 72 HOURS PRIOR TO DAY 1) AND 8
     Route: 037
     Dates: start: 20120430

REACTIONS (11)
  - ACIDOSIS [None]
  - ENCEPHALOPATHY [None]
  - HYPOCALCAEMIA [None]
  - RESPIRATORY FAILURE [None]
  - POSTERIOR REVERSIBLE ENCEPHALOPATHY SYNDROME [None]
  - HYPOTENSION [None]
  - HYPERCALCAEMIA [None]
  - CARDIAC ARREST [None]
  - SEPSIS [None]
  - STOMATITIS [None]
  - ENTEROCOLITIS [None]
